FAERS Safety Report 21892890 (Version 1)
Quarter: 2023Q1

REPORT INFORMATION
  Report Type: Report from Study
  Country: US (occurrence: US)
  Receive Date: 20230120
  Receipt Date: 20230120
  Transmission Date: 20230418
  Serious: Yes (Other)
  Sender: FDA-Public Use
  Company Number: US-JAZZ-2022-US-026800

PATIENT
  Sex: Male

DRUGS (11)
  1. XYWAV [Suspect]
     Active Substance: CALCIUM OXYBATE\MAGNESIUM OXYBATE\POTASSIUM OXYBATE\SODIUM OXYBATE
     Indication: Narcolepsy
     Dosage: UNK
  2. PROVENTIL HFA [SALBUTAMOL] [Concomitant]
     Dosage: 0000
     Dates: start: 20141209
  3. VITAMIN D3 [Concomitant]
     Active Substance: CHOLECALCIFEROL
     Dosage: 5000 UNIT SOFTGEL
     Dates: start: 20150304
  4. MELATONIN [Concomitant]
     Active Substance: MELATONIN
     Dosage: 0010
     Dates: start: 20150304
  5. PHENYLEPHRINE [Concomitant]
     Active Substance: PHENYLEPHRINE HYDROCHLORIDE
     Dosage: 0000
     Dates: start: 20150304
  6. PSYLLIUM HUSK POWDER [Concomitant]
     Dosage: 0000
     Dates: start: 20150304
  7. FEXOFENADINE HCL [Concomitant]
     Active Substance: FEXOFENADINE HYDROCHLORIDE
     Dosage: 0000
     Dates: start: 20150101
  8. SINGULAIR [Concomitant]
     Active Substance: MONTELUKAST SODIUM
     Dosage: 0000
     Dates: start: 20160606
  9. AZELASTINE [Concomitant]
     Active Substance: AZELASTINE
     Dosage: 0000
     Dates: start: 20160401
  10. PATADAY [Concomitant]
     Active Substance: OLOPATADINE HYDROCHLORIDE
     Dosage: 0000
     Dates: start: 20211201
  11. TRELEGY ELLIPTA [Concomitant]
     Active Substance: FLUTICASONE FUROATE\UMECLIDINIUM BROMIDE\VILANTEROL TRIFENATATE
     Indication: Product used for unknown indication
     Dosage: UNK
     Dates: start: 20221110

REACTIONS (3)
  - Knee operation [Recovered/Resolved]
  - Osteopenia [Unknown]
  - Osteoporosis [Recovered/Resolved]
